FAERS Safety Report 4638365-8 (Version None)
Quarter: 2005Q2

REPORT INFORMATION
  Report Type: 
  Country: None (occurrence: None)
  Receive Date: 20050418
  Receipt Date: 20050408
  Transmission Date: 20051028
  Serious: Yes (Disabling)
  Sender: FDA-Public Use
  Company Number: US-MERCK-0504USA01228

PATIENT
  Age: 29 Year
  Sex: Female

DRUGS (4)
  1. VIOXX [Suspect]
     Indication: BACK PAIN
     Route: 048
     Dates: start: 20020101, end: 20030101
  2. VIOXX [Suspect]
     Route: 048
     Dates: start: 20020101, end: 20030101
  3. VIOXX [Suspect]
     Indication: DYSMENORRHOEA
     Route: 048
     Dates: start: 20020101, end: 20030101
  4. VIOXX [Suspect]
     Route: 048
     Dates: start: 20020101, end: 20030101

REACTIONS (8)
  - CARDIAC FLUTTER [None]
  - CHEST PAIN [None]
  - DYSPNOEA [None]
  - HYPERHIDROSIS [None]
  - PAIN IN EXTREMITY [None]
  - PANIC ATTACK [None]
  - PARAESTHESIA [None]
  - SENSORY DISTURBANCE [None]
